FAERS Safety Report 8737925 (Version 2)
Quarter: 2012Q4

REPORT INFORMATION
  Report Type: 
  Country: JP (occurrence: JP)
  Receive Date: 20120823
  Receipt Date: 20121010
  Transmission Date: 20130627
  Serious: Yes (Hospitalization)
  Sender: FDA-Public Use
  Company Number: JP-009507513-1208JPN004921

PATIENT
  Age: 65 Year
  Sex: Male

DRUGS (8)
  1. GLACTIV [Suspect]
     Indication: TYPE 2 DIABETES MELLITUS
     Dosage: 50 mg, qd
     Route: 048
     Dates: start: 20120223, end: 20120805
  2. ACTOS [Concomitant]
     Dosage: UNK
     Route: 048
     Dates: end: 20120805
  3. OMEPRAL [Concomitant]
     Dosage: UNK
     Dates: start: 20090828, end: 20120805
  4. ECARD LD [Concomitant]
     Dosage: UNK
     Dates: start: 20110819, end: 20120805
  5. ZYLORIC [Concomitant]
     Dosage: UNK
     Dates: end: 20120805
  6. MUCOSTA [Concomitant]
     Dosage: UNK
     Dates: start: 20090821, end: 20120805
  7. ZETIA [Concomitant]
     Dosage: UNK
     Route: 048
     Dates: start: 20100428, end: 20120805
  8. BEZATOL SR [Concomitant]
     Dosage: UNK
     Dates: start: 20100902, end: 20120805

REACTIONS (1)
  - Ileus [Recovered/Resolved]
